FAERS Safety Report 13358393 (Version 1)
Quarter: 2017Q1

REPORT INFORMATION
  Report Type: Spontaneous
  Country: US (occurrence: US)
  Receive Date: 20170321
  Receipt Date: 20170321
  Transmission Date: 20170429
  Serious: Yes (Hospitalization)
  Sender: FDA-Public Use
  Company Number: None

PATIENT
  Age: 94 Year
  Sex: Male

DRUGS (9)
  1. MULTIVITAMON [Concomitant]
  2. FERROUS SULFATE. [Concomitant]
     Active Substance: FERROUS SULFATE
  3. XELODA [Concomitant]
     Active Substance: CAPECITABINE
  4. METOPROLOL TARTRATE. [Concomitant]
     Active Substance: METOPROLOL TARTRATE
  5. SIMVASTATIN. [Concomitant]
     Active Substance: SIMVASTATIN
  6. ALTACE [Concomitant]
     Active Substance: RAMIPRIL
  7. ASPIRIN. [Concomitant]
     Active Substance: ASPIRIN
  8. FLOMAX [Concomitant]
     Active Substance: TAMSULOSIN HYDROCHLORIDE
  9. CAPECITABINE. [Suspect]
     Active Substance: CAPECITABINE
     Indication: COLON CANCER
     Route: 048

REACTIONS (1)
  - Hospitalisation [None]
